FAERS Safety Report 5995268-4 (Version None)
Quarter: 2008Q4

REPORT INFORMATION
  Report Type: 
  Country: None (occurrence: None)
  Receive Date: 20081212
  Receipt Date: 20080924
  Transmission Date: 20090506
  Serious: No
  Sender: FDA-Public Use
  Company Number: US-ABBOTT-08P-163-0478273-00

PATIENT
  Sex: Female
  Weight: 124.85 kg

DRUGS (4)
  1. HUMIRA [Suspect]
     Indication: RHEUMATOID ARTHRITIS
     Route: 058
     Dates: start: 20080924
  2. METHOTREXATE [Concomitant]
     Indication: RHEUMATOID ARTHRITIS
     Route: 048
     Dates: start: 20080601
  3. LORAZEPAM [Concomitant]
     Indication: SEDATIVE THERAPY
     Dosage: 1 TAB IN EARLY EVENING + 1 TAB AT BED
     Route: 048
  4. ACETAMINOPHEN W/ CODEINE [Concomitant]
     Indication: PAIN
     Route: 048
     Dates: start: 20060101

REACTIONS (1)
  - INJECTION SITE PAIN [None]
